FAERS Safety Report 13181730 (Version 1)
Quarter: 2017Q1

REPORT INFORMATION
  Report Type: Spontaneous
  Country: US (occurrence: US)
  Receive Date: 20170202
  Receipt Date: 20170202
  Transmission Date: 20170428
  Serious: Yes (Hospitalization)
  Sender: FDA-Public Use
  Company Number: None

PATIENT
  Age: 24 Year
  Sex: Male
  Weight: 46.63 kg

DRUGS (11)
  1. LANTUS SOLOSTAR [Concomitant]
     Active Substance: INSULIN GLARGINE
  2. PROVENTIL [Concomitant]
     Active Substance: ALBUTEROL
  3. SODIUM CHLORIDE. [Concomitant]
     Active Substance: SODIUM CHLORIDE
  4. ORKAMBI [Concomitant]
     Active Substance: IVACAFTOR\LUMACAFTOR
  5. PEG 3350 [Concomitant]
     Active Substance: POLYETHYLENE GLYCOL 3350
  6. PULMOZYME [Concomitant]
     Active Substance: DORNASE ALFA
  7. ADVAIR HFA [Suspect]
     Active Substance: FLUTICASONE PROPIONATE\SALMETEROL XINAFOATE
  8. BUDESONIDE. [Concomitant]
     Active Substance: BUDESONIDE
  9. AQUADEKS [Concomitant]
     Active Substance: MINERALS\VITAMINS
  10. SILDENAFIL 20MG OR PLACEBO [Suspect]
     Active Substance: SILDENAFIL
     Indication: CYSTIC FIBROSIS
     Route: 048
     Dates: start: 20161109, end: 20161116
  11. SILDENAFIL 40 MG OR PLACEBO [Suspect]
     Active Substance: SILDENAFIL
     Route: 048
     Dates: start: 20161116, end: 20170202

REACTIONS (8)
  - Refusal of treatment by patient [None]
  - Sinus congestion [None]
  - Condition aggravated [None]
  - Wheezing [None]
  - Lung disorder [None]
  - Exposure to communicable disease [None]
  - Cough [None]
  - Forced expiratory volume decreased [None]

NARRATIVE: CASE EVENT DATE: 20170201
